FAERS Safety Report 15875121 (Version 1)
Quarter: 2019Q1

REPORT INFORMATION
  Report Type: Other
  Country: US (occurrence: US)
  Receive Date: 20190126
  Receipt Date: 20190126
  Transmission Date: 20190417
  Serious: No
  Sender: FDA-Public Use
  Company Number: US-ACORDA-ACO_154465_2018

PATIENT
  Age: 60 Year
  Sex: Female

DRUGS (2)
  1. AMPYRA [Suspect]
     Active Substance: DALFAMPRIDINE
     Indication: MULTIPLE SCLEROSIS
     Dosage: 10 MILLIGRAM, BID
     Route: 048
  2. AUBAGIO [Suspect]
     Active Substance: TERIFLUNOMIDE
     Indication: PRODUCT USED FOR UNKNOWN INDICATION
     Dosage: UNK
     Route: 065

REACTIONS (8)
  - Mood swings [Unknown]
  - Depression [Unknown]
  - Palpitations [Unknown]
  - Peripheral swelling [Unknown]
  - Dizziness [Unknown]
  - Psoriasis [Unknown]
  - Cognitive disorder [Unknown]
  - Nausea [Unknown]

NARRATIVE: CASE EVENT DATE: 20180831
